FAERS Safety Report 14244290 (Version 1)
Quarter: 2017Q4

REPORT INFORMATION
  Report Type: Spontaneous
  Country: KR (occurrence: KR)
  Receive Date: 20171201
  Receipt Date: 20171201
  Transmission Date: 20180321
  Serious: Yes (Hospitalization)
  Sender: FDA-Public Use
  Company Number: KR-JNJFOC-20171125808

PATIENT

DRUGS (1)
  1. PALIPERIDONE PALMITATE [Suspect]
     Active Substance: PALIPERIDONE PALMITATE
     Indication: SCHIZOPHRENIA
     Route: 030

REACTIONS (10)
  - Hospitalisation [Unknown]
  - Blood prolactin increased [Unknown]
  - Anosognosia [Unknown]
  - Drug ineffective [Unknown]
  - Treatment noncompliance [Unknown]
  - Somnolence [Unknown]
  - Extrapyramidal disorder [Unknown]
  - Galactorrhoea [Unknown]
  - Injection site pain [Unknown]
  - Incorrect dose administered [Unknown]
